FAERS Safety Report 7714030-5 (Version None)
Quarter: 2011Q3

REPORT INFORMATION
  Report Type: 
  Country: None (occurrence: None)
  Receive Date: 20110826
  Receipt Date: 20110817
  Transmission Date: 20111222
  Serious: Yes (Hospitalization)
  Sender: FDA-Public Use
  Company Number: ES-ASTRAZENECA-2011SE49554

PATIENT
  Age: 87 Year
  Sex: Female

DRUGS (6)
  1. ASPIRIN [Interacting]
     Indication: THROMBOSIS PROPHYLAXIS
     Route: 048
     Dates: start: 20110314, end: 20110525
  2. CO-VALS FORTE [Concomitant]
     Indication: HYPERTENSION
     Dosage: 160/25 MG
     Route: 048
     Dates: start: 20100828
  3. LERCANIDIPINE ACTAVIS [Concomitant]
     Indication: HYPERTENSION
     Route: 048
     Dates: start: 20100902
  4. LEXATIN [Concomitant]
     Indication: INSOMNIA
     Route: 048
     Dates: start: 20110506
  5. SEROQUEL [Suspect]
     Indication: AGITATION
     Route: 048
     Dates: start: 20110519, end: 20110525
  6. ARICEPT [Interacting]
     Indication: DEMENTIA
     Route: 048
     Dates: start: 20100712

REACTIONS (2)
  - DRUG INTERACTION [None]
  - IRON DEFICIENCY ANAEMIA [None]
